FAERS Safety Report 4515785-3 (Version None)
Quarter: 2004Q4

REPORT INFORMATION
  Report Type: 
  Country: None (occurrence: None)
  Receive Date: 20040930
  Receipt Date: 20040809
  Transmission Date: 20050328
  Serious: No
  Sender: FDA-Public Use
  Company Number: USA-2004-0016359

PATIENT
  Sex: Male

DRUGS (1)
  1. SPECTRACEF [Suspect]
     Dosage: ORAL
     Route: 048

REACTIONS (3)
  - DIARRHOEA [None]
  - DYSPEPSIA [None]
  - NAUSEA [None]
